FAERS Safety Report 8457114-9 (Version None)
Quarter: 2012Q2

REPORT INFORMATION
  Report Type: 
  Country: None (occurrence: None)
  Receive Date: 20120621
  Receipt Date: 20120614
  Transmission Date: 20120825
  Serious: Yes (Hospitalization)
  Sender: FDA-Public Use
  Company Number: JP-B.I. PHARMACEUTICALS,INC./RIDGEFIELD-2012-BP-13176NB

PATIENT
  Age: 90 Year
  Sex: Female

DRUGS (7)
  1. CALFINA [Concomitant]
     Indication: OSTEOPOROSIS
     Dosage: 1 MCG
     Route: 048
  2. AMLODIPINE [Concomitant]
     Indication: HYPERTENSION
     Dosage: 5 MCG
     Route: 048
  3. OPALMON [Concomitant]
     Indication: LUMBAR SPINAL STENOSIS
     Route: 048
  4. PRADAXA [Suspect]
     Indication: ATRIAL FIBRILLATION
     Dosage: 220 MG
     Route: 048
     Dates: start: 20110601
  5. MELOXICAM [Suspect]
     Indication: BACK PAIN
     Dosage: 10 MG
     Route: 048
  6. EVISTA [Concomitant]
     Indication: OSTEOPOROSIS
     Dosage: 60 MG
     Route: 048
  7. PLAVIX [Suspect]
     Indication: CEREBROVASCULAR DISORDER
     Dosage: 75 MCG
     Route: 048
     Dates: start: 20101101

REACTIONS (1)
  - CALCULUS URINARY [None]
